FAERS Safety Report 7340964-X (Version None)
Quarter: 2011Q1

REPORT INFORMATION
  Report Type: 
  Country: None (occurrence: None)
  Receive Date: 20110309
  Receipt Date: 20110224
  Transmission Date: 20110831
  Serious: Yes (Life-Threatening, Hospitalization)
  Sender: FDA-Public Use
  Company Number: DE-ELI_LILLY_AND_COMPANY-DE201101007346

PATIENT
  Sex: Female
  Weight: 113 kg

DRUGS (5)
  1. ALIMTA [Suspect]
     Indication: BRONCHIAL CARCINOMA
     Dosage: 860 MG, UNK
     Route: 042
     Dates: start: 20101221, end: 20101221
  2. CARBOPLATIN [Concomitant]
     Dosage: 516 MG, UNK
     Route: 042
     Dates: start: 20101221
  3. DEXAMETHASONE [Concomitant]
     Dosage: 4 MG, 2/D
     Dates: start: 20101220, end: 20101221
  4. FOLSAN [Concomitant]
     Dosage: 0.4 MG, ONCE
     Dates: start: 20101221
  5. VIT B12 [Concomitant]

REACTIONS (9)
  - ERYTHEMA [None]
  - DYSPNOEA [None]
  - HYPERSENSITIVITY [None]
  - HYPERTENSION [None]
  - LIP SWELLING [None]
  - COUGH [None]
  - PHARYNGEAL OEDEMA [None]
  - PRURITUS [None]
  - PAPULE [None]
